FAERS Safety Report 18480958 (Version 1)
Quarter: 2020Q4

REPORT INFORMATION
  Report Type: Spontaneous
  Country: US (occurrence: US)
  Receive Date: 20201109
  Receipt Date: 20201109
  Transmission Date: 20210114
  Serious: Yes (Hospitalization, Other)
  Sender: FDA-Public Use
  Company Number: US-GLAXOSMITHKLINE-US2020GSK215571

PATIENT
  Age: 58 Year
  Sex: Female

DRUGS (7)
  1. ALBUTEROL. [Suspect]
     Active Substance: ALBUTEROL
     Indication: ASTHMA
     Dosage: UNK
  2. IPRATROPIUM [Concomitant]
     Active Substance: IPRATROPIUM
  3. ALBUTEROL. [Suspect]
     Active Substance: ALBUTEROL
     Indication: DISEASE RECURRENCE
     Dosage: 15 MG
     Route: 055
  4. ALBUTEROL. [Suspect]
     Active Substance: ALBUTEROL
     Dosage: 2.5 MG, BID
     Route: 055
  5. PREDNISONE. [Concomitant]
     Active Substance: PREDNISONE
     Indication: ASTHMA
     Dosage: UNK
  6. METFORMIN [Suspect]
     Active Substance: METFORMIN HYDROCHLORIDE
     Indication: DIABETES MELLITUS
     Dosage: UNK
  7. BUDESONIDE. [Concomitant]
     Active Substance: BUDESONIDE
     Indication: ASTHMA
     Dosage: UNK
     Route: 055

REACTIONS (9)
  - Tachypnoea [Recovered/Resolved]
  - Wheezing [Recovered/Resolved]
  - Pneumonia [Recovered/Resolved]
  - Blood lactic acid increased [Recovered/Resolved]
  - Pleuritic pain [Recovered/Resolved]
  - Extra dose administered [Unknown]
  - Fibrin D dimer increased [Recovered/Resolved]
  - Fluid overload [Recovered/Resolved]
  - Lactic acidosis [Recovered/Resolved]
